FAERS Safety Report 7989570 (Version 4)
Quarter: 2013Q1

REPORT INFORMATION
  Report Type: Spontaneous
  Country: US (occurrence: US)
  Receive Date: 20110614
  Receipt Date: 20130109
  Transmission Date: 20140127
  Serious: Yes (Hospitalization)
  Sender: FDA-Public Use
  Company Number: US-BAYER-2011-047986

PATIENT
  Age: 43 Year
  Sex: Female

DRUGS (7)
  1. YAZ [Suspect]
     Indication: CONTRACEPTION
     Dosage: UNK UNK, CONT
     Dates: start: 20100624
  2. CLARITIN [Concomitant]
     Indication: HYPERSENSITIVITY
  3. HYDROCODONE [Concomitant]
     Indication: PRURITUS
  4. ORTHO CYCLEN [Concomitant]
  5. AMOXICILLIN [Concomitant]
     Dosage: 500 MG, UNK
  6. METHYLPREDNISOLONE [Concomitant]
     Dosage: 4 MG, UNK
  7. TRAMADOL [Concomitant]
     Dosage: 50 MG, UNK

REACTIONS (3)
  - Pulmonary embolism [Recovered/Resolved]
  - Deep vein thrombosis [Recovered/Resolved]
  - Factor V Leiden mutation [None]
